FAERS Safety Report 14023439 (Version 1)
Quarter: 2017Q3

REPORT INFORMATION
  Report Type: Other
  Country: CA (occurrence: CA)
  Receive Date: 20170929
  Receipt Date: 20170929
  Transmission Date: 20171128
  Serious: Yes (Hospitalization, Other)
  Sender: FDA-Public Use
  Company Number: CA-APOTEX-2017AP018899

PATIENT
  Age: 51 Year
  Sex: Female

DRUGS (1)
  1. APO-LITHIUM CARBONATE [Suspect]
     Active Substance: LITHIUM CARBONATE
     Indication: PRODUCT USED FOR UNKNOWN INDICATION
     Dosage: 1500 MG, UNK
     Route: 048

REACTIONS (12)
  - Antipsychotic drug level increased [Unknown]
  - Toxicity to various agents [Unknown]
  - Thirst [Unknown]
  - Confusional state [Unknown]
  - Pollakiuria [Unknown]
  - Fall [Unknown]
  - Dysarthria [Unknown]
  - Extrapyramidal disorder [Unknown]
  - Somnolence [Unknown]
  - Gait disturbance [Unknown]
  - Antipsychotic drug level above therapeutic [Unknown]
  - Tremor [Unknown]
